FAERS Safety Report 7500745-0 (Version None)
Quarter: 2011Q2

REPORT INFORMATION
  Report Type: 
  Country: None (occurrence: None)
  Receive Date: 20110524
  Receipt Date: 20110513
  Transmission Date: 20111010
  Serious: Yes (Other)
  Sender: FDA-Public Use
  Company Number: JP-BRISTOL-MYERS SQUIBB COMPANY-15748486

PATIENT
  Age: 70 Year
  Sex: Male

DRUGS (4)
  1. CEFTAZIDIME [Suspect]
     Indication: PYREXIA
     Dosage: INJ
     Route: 042
     Dates: start: 20110414
  2. HYDREA [Suspect]
     Indication: ESSENTIAL THROMBOCYTHAEMIA
     Dosage: 6 MONTHS AGO
     Route: 048
     Dates: start: 20110412, end: 20110414
  3. AMLODIPINE [Concomitant]
     Route: 048
  4. HYDREA [Suspect]
     Indication: CEREBRAL INFARCTION
     Dosage: 6 MONTHS AGO
     Route: 048
     Dates: start: 20110412, end: 20110414

REACTIONS (5)
  - WHITE BLOOD CELL COUNT INCREASED [None]
  - PYREXIA [None]
  - HEPATIC FUNCTION ABNORMAL [None]
  - DECREASED APPETITE [None]
  - MALAISE [None]
